FAERS Safety Report 7555625-1 (Version None)
Quarter: 2011Q2

REPORT INFORMATION
  Report Type: 
  Country: None (occurrence: None)
  Receive Date: 20110617
  Receipt Date: 20081111
  Transmission Date: 20111010
  Serious: Yes (Other)
  Sender: FDA-Public Use
  Company Number: PHHY2008CA14586

PATIENT
  Sex: Male

DRUGS (7)
  1. ALTACE [Concomitant]
  2. SANDOSTATIN LAR [Suspect]
     Dosage: 20 MG, QMO
     Route: 030
     Dates: start: 20080125
  3. CELEXA [Concomitant]
     Indication: DEPRESSION
  4. ATIVAN [Concomitant]
  5. GLYBURIDE [Concomitant]
  6. FLOMAX [Concomitant]
  7. ASPIRIN [Concomitant]

REACTIONS (2)
  - DEPRESSION [None]
  - DEPRESSED MOOD [None]
